FAERS Safety Report 22212347 (Version 1)
Quarter: 2023Q2

REPORT INFORMATION
  Report Type: Spontaneous
  Country: ES (occurrence: None)
  Receive Date: 20230414
  Receipt Date: 20230414
  Transmission Date: 20230721
  Serious: Yes (Life-Threatening, Hospitalization)
  Sender: FDA-Public Use
  Company Number: 2023A083689

PATIENT
  Age: 59 Year
  Sex: Male

DRUGS (6)
  1. DAPAGLIFLOZIN [Suspect]
     Active Substance: DAPAGLIFLOZIN
     Indication: Latent autoimmune diabetes in adults
     Route: 048
     Dates: start: 20190909, end: 20230330
  2. OMEPRAZOLE [Concomitant]
     Active Substance: OMEPRAZOLE
     Indication: Gastritis
     Route: 048
     Dates: start: 20161207
  3. TOUJEO [Concomitant]
     Active Substance: INSULIN GLARGINE
     Indication: Latent autoimmune diabetes in adults
     Dosage: 16 UNITS PER DAY
     Route: 023
     Dates: start: 20200207
  4. REPAGLINIDE [Concomitant]
     Active Substance: REPAGLINIDE
     Indication: Latent autoimmune diabetes in adults
     Route: 048
     Dates: start: 20170125
  5. SIMVASTATINA + EZETIMIBA [Concomitant]
     Indication: Hypercholesterolaemia
     Route: 048
     Dates: start: 20220722
  6. PREGABALIN [Concomitant]
     Active Substance: PREGABALIN
     Route: 048
     Dates: start: 20210812

REACTIONS (1)
  - Renal abscess [Recovering/Resolving]

NARRATIVE: CASE EVENT DATE: 20230330
